FAERS Safety Report 14674438 (Version 2)
Quarter: 2018Q2

REPORT INFORMATION
  Report Type: Spontaneous
  Country: JP (occurrence: JP)
  Receive Date: 20180323
  Receipt Date: 20180412
  Transmission Date: 20180711
  Serious: Yes (Hospitalization)
  Sender: FDA-Public Use
  Company Number: JP-ABBVIE-18P-087-2298381-00

PATIENT
  Age: 35 Year
  Sex: Female
  Weight: 52.2 kg

DRUGS (12)
  1. LEUPRORELIN ACETATE [Suspect]
     Active Substance: LEUPROLIDE ACETATE
     Indication: UTERINE LEIOMYOMA
     Dosage: 1.88 MG, Q4WEEKS
     Route: 058
     Dates: start: 20171115, end: 20180122
  2. THIAMAZOLE [Concomitant]
     Active Substance: METHIMAZOLE
     Indication: BASEDOW^S DISEASE
     Dosage: 5 MG, 3/WEEK
     Route: 048
  3. THIAMAZOLE [Concomitant]
     Active Substance: METHIMAZOLE
     Dosage: 10 MG, UNK
     Route: 048
     Dates: start: 20180110, end: 20180122
  4. POTASSIUM IODIDE. [Concomitant]
     Active Substance: POTASSIUM IODIDE
     Dosage: 100 MG, UNK
     Route: 048
     Dates: start: 20180206
  5. THIAMAZOLE [Concomitant]
     Active Substance: METHIMAZOLE
     Dosage: 30 MG, UNK
     Route: 048
     Dates: start: 20180123
  6. THIAMAZOLE [Concomitant]
     Active Substance: METHIMAZOLE
     Dosage: 60 MG, UNK
     Route: 048
     Dates: start: 20180204, end: 20180205
  7. THIAMAZOLE [Concomitant]
     Active Substance: METHIMAZOLE
     Dosage: 5 MG, 2/WEEK
     Route: 048
     Dates: start: 20170412
  8. THIAMAZOLE [Concomitant]
     Active Substance: METHIMAZOLE
     Dosage: 30 MG, UNK
     Route: 048
     Dates: start: 20180206
  9. THIAMAZOLE [Concomitant]
     Active Substance: METHIMAZOLE
     Dosage: 5 MG, 1/WEEK
     Route: 048
     Dates: start: 20170802
  10. THIAMAZOLE [Concomitant]
     Active Substance: METHIMAZOLE
     Dosage: 5 MG, UNK
     Route: 048
     Dates: start: 20180105, end: 20180109
  11. POTASSIUM IODIDE. [Concomitant]
     Active Substance: POTASSIUM IODIDE
     Dosage: 200 MG, UNK
     Route: 048
     Dates: start: 20180204, end: 20180205
  12. POTASSIUM IODIDE. [Concomitant]
     Active Substance: POTASSIUM IODIDE
     Indication: BASEDOW^S DISEASE
     Dosage: 50 MG, UNK
     Route: 048
     Dates: start: 20180110

REACTIONS (1)
  - Hyperthyroidism [Recovering/Resolving]

NARRATIVE: CASE EVENT DATE: 20180105
